FAERS Safety Report 15349824 (Version 6)
Quarter: 2018Q4

REPORT INFORMATION
  Report Type: Spontaneous
  Country: GB (occurrence: GB)
  Receive Date: 20180904
  Receipt Date: 20181016
  Transmission Date: 20190204
  Serious: Yes (Hospitalization, Other)
  Sender: FDA-Public Use
  Company Number: PHHY2018GB087041

PATIENT
  Age: 22 Year
  Sex: Female

DRUGS (10)
  1. AZATHIOPRINE. [Suspect]
     Active Substance: AZATHIOPRINE
     Indication: LIVER TRANSPLANT
     Dosage: POST LIVER TRANSPLANTATION
     Route: 065
  2. TACROLIMUS. [Suspect]
     Active Substance: TACROLIMUS
     Indication: LIVER TRANSPLANT
  3. PREDNISOLONE. [Suspect]
     Active Substance: PREDNISOLONE
     Indication: IMMUNOSUPPRESSION
     Dosage: 20 MG, QD DOSE INCREASED
     Route: 065
  4. TACROLIMUS. [Suspect]
     Active Substance: TACROLIMUS
     Indication: IMMUNOSUPPRESSION
     Route: 065
  5. MESALAZINE [Suspect]
     Active Substance: MESALAMINE
     Dosage: UNK DOSE INCREASED
     Route: 065
  6. AZATHIOPRINE. [Suspect]
     Active Substance: AZATHIOPRINE
     Indication: IMMUNOSUPPRESSION
     Dosage: LOWER DOSE
     Route: 065
  7. MESALAZINE [Suspect]
     Active Substance: MESALAMINE
     Indication: CHOLANGITIS SCLEROSING
     Dosage: 800 MG, QD
     Route: 065
  8. MESALAZINE [Suspect]
     Active Substance: MESALAMINE
     Dosage: 2.4 G, QD
     Route: 065
  9. PREDNISOLONE. [Suspect]
     Active Substance: PREDNISOLONE
     Dosage: 40 MG, QD
     Route: 065
  10. MESALAZINE [Suspect]
     Active Substance: MESALAMINE
     Dosage: 1600 MG, QD
     Route: 065

REACTIONS (10)
  - Neutropenia [Recovering/Resolving]
  - Hepatic failure [Recovering/Resolving]
  - Haematochezia [Recovering/Resolving]
  - Iron deficiency anaemia [Unknown]
  - Weight decreased [Recovering/Resolving]
  - Drug ineffective [Unknown]
  - Cytomegalovirus viraemia [Recovering/Resolving]
  - Treatment failure [Recovered/Resolved]
  - Diarrhoea haemorrhagic [Recovering/Resolving]
  - Inflammatory bowel disease [Recovered/Resolved]
